FAERS Safety Report 9148521 (Version 1)
Quarter: 2013Q1

REPORT INFORMATION
  Report Type: Spontaneous
  Country: US (occurrence: None)
  Receive Date: 20130228
  Receipt Date: 20130228
  Transmission Date: 20140127
  Serious: Yes (Other)
  Sender: FDA-Public Use
  Company Number: None

PATIENT
  Age: 56 Year
  Sex: Male
  Weight: 88.45 kg

DRUGS (1)
  1. BETASERON [Suspect]
     Indication: MULTIPLE SCLEROSIS RELAPSE
     Dosage: 0.25 1X EVERY OTHER DAY SQ
     Route: 058
     Dates: start: 20130117, end: 20130123

REACTIONS (4)
  - Multiple sclerosis relapse [None]
  - Convulsion [None]
  - Hemiplegia [None]
  - Gait disturbance [None]
